FAERS Safety Report 15851681 (Version 1)
Quarter: 2019Q1

REPORT INFORMATION
  Report Type: Spontaneous
  Country: US (occurrence: US)
  Receive Date: 20190122
  Receipt Date: 20190122
  Transmission Date: 20190417
  Serious: No
  Sender: FDA-Public Use
  Company Number: US-SERB S.A.S.-2061540

PATIENT
  Age: 70 Year
  Sex: Female

DRUGS (2)
  1. UNSPECIFIED VASOPRESSORS [Concomitant]
  2. CYANOKIT [Suspect]
     Active Substance: HYDROXOCOBALAMIN
     Indication: SHOCK
     Route: 042

REACTIONS (2)
  - Product use in unapproved indication [Unknown]
  - Chromaturia [Unknown]
